FAERS Safety Report 5154003-2 (Version None)
Quarter: 2006Q4

REPORT INFORMATION
  Report Type: 
  Country: None (occurrence: None)
  Receive Date: 20061120
  Receipt Date: 20060502
  Transmission Date: 20070319
  Serious: Yes (Other)
  Sender: FDA-Public Use
  Company Number: NO-GLAXOSMITHKLINE-B0423176A

PATIENT
  Sex: Male

DRUGS (5)
  1. LAMICTAL [Suspect]
     Indication: EPILEPSY
     Dosage: 550MG PER DAY
  2. KEPPRA [Suspect]
     Indication: EPILEPSY
  3. ORFIRIL LONG [Suspect]
     Indication: EPILEPSY
  4. FOLIC ACID [Concomitant]
     Indication: PROPHYLAXIS
     Route: 065
  5. PHYTOMENADIONE [Concomitant]
     Indication: PROPHYLAXIS
     Dosage: 10DROP PER DAY
     Route: 065
     Dates: start: 20060112

REACTIONS (2)
  - CLEFT PALATE [None]
  - DRUG EXPOSURE DURING PREGNANCY [None]
